FAERS Safety Report 10972713 (Version 1)
Quarter: 2015Q1

REPORT INFORMATION
  Report Type: Spontaneous
  Country: TH (occurrence: TH)
  Receive Date: 20150331
  Receipt Date: 20150331
  Transmission Date: 20150721
  Serious: Yes (Other)
  Sender: FDA-Public Use
  Company Number: TH-MYLANLABS-2015M1009934

PATIENT

DRUGS (1)
  1. EPINEPHRINE. [Suspect]
     Active Substance: EPINEPHRINE
     Dosage: 1 AMPOULE
     Route: 030

REACTIONS (2)
  - Wrong drug administered [Recovered/Resolved]
  - Thyrotoxic crisis [Recovered/Resolved]
